FAERS Safety Report 7607944-8 (Version None)
Quarter: 2011Q3

REPORT INFORMATION
  Report Type: 
  Country: None (occurrence: None)
  Receive Date: 20110714
  Receipt Date: 20110127
  Transmission Date: 20111222
  Serious: Yes (Other)
  Sender: FDA-Public Use
  Company Number: US-BAYER-200939405NA

PATIENT
  Age: 31 Year
  Sex: Female
  Weight: 102.4 kg

DRUGS (10)
  1. PRIMACOR [Concomitant]
     Dosage: 0.3
  2. TRASYLOL [Suspect]
     Indication: AORTIC ANEURYSM REPAIR
  3. METOPROLOL SUCCINATE [Concomitant]
     Dosage: 50 MG, UNK
     Route: 048
     Dates: start: 20021127
  4. PROTAMINE SULFATE [Concomitant]
     Dosage: UNK
     Dates: start: 20021202
  5. DOPAMINE HCL [Concomitant]
     Dosage: 10MCG/KG/MIN
  6. TRASYLOL [Suspect]
     Indication: CORONARY ARTERY BYPASS
     Dosage: 100 ML, UNK
     Route: 042
     Dates: start: 20021202
  7. ACETYLSALICYLIC ACID SRT [Concomitant]
     Route: 048
  8. DOBUTAMINE HCL [Concomitant]
     Dosage: 10MCG/KG.MIN
  9. NITROGLYCERIN [Concomitant]
     Dosage: 0.25
     Route: 042
  10. HEPARIN [Concomitant]
     Dosage: UNK
     Dates: start: 20021202

REACTIONS (13)
  - HEART INJURY [None]
  - RENAL INJURY [None]
  - STRESS [None]
  - PAIN [None]
  - CARDIOGENIC SHOCK [None]
  - ANHEDONIA [None]
  - DEPRESSION [None]
  - INJURY [None]
  - EMOTIONAL DISTRESS [None]
  - UNEVALUABLE EVENT [None]
  - RENAL FAILURE [None]
  - ANXIETY [None]
  - FEAR [None]
